FAERS Safety Report 5699379-2 (Version None)
Quarter: 2008Q2

REPORT INFORMATION
  Report Type: 
  Country: None (occurrence: None)
  Receive Date: 20080407
  Receipt Date: 20080321
  Transmission Date: 20081010
  Serious: Yes (Hospitalization)
  Sender: FDA-Public Use
  Company Number: 1-15923403

PATIENT
  Age: 15 Year
  Sex: Male
  Weight: 63.5036 kg

DRUGS (1)
  1. SOLODYN [Suspect]
     Indication: ACNE
     Dosage: ONE TABLET DAILY ORALLY
     Route: 048
     Dates: start: 20070901, end: 20071001

REACTIONS (20)
  - ABDOMINAL PAIN [None]
  - ABDOMINAL RIGIDITY [None]
  - BENIGN INTRACRANIAL HYPERTENSION [None]
  - BLOOD PRESSURE INCREASED [None]
  - CRYING [None]
  - DEHYDRATION [None]
  - GASTROINTESTINAL DISORDER [None]
  - GENERAL PHYSICAL HEALTH DETERIORATION [None]
  - GENERALISED OEDEMA [None]
  - INFLUENZA LIKE ILLNESS [None]
  - LIVER FUNCTION TEST ABNORMAL [None]
  - MALAISE [None]
  - PYREXIA [None]
  - RASH [None]
  - RENAL FAILURE ACUTE [None]
  - SERUM SICKNESS [None]
  - SKIN DISCOLOURATION [None]
  - SKIN EXFOLIATION [None]
  - SPLENOMEGALY [None]
  - VOMITING [None]
